FAERS Safety Report 8247826-4 (Version None)
Quarter: 2012Q1

REPORT INFORMATION
  Report Type: 
  Country: None (occurrence: None)
  Receive Date: 20120330
  Receipt Date: 20120323
  Transmission Date: 20120608
  Serious: Yes (Other)
  Sender: FDA-Public Use
  Company Number: US-PFIZER INC-2011282432

PATIENT
  Sex: Female

DRUGS (3)
  1. DETROL LA [Suspect]
     Indication: HYPERTONIC BLADDER
     Dosage: 4 MG, UNK
     Route: 048
  2. TOVIAZ [Suspect]
     Dosage: UNK
  3. OXYBUTYNIN [Concomitant]

REACTIONS (11)
  - DRUG INEFFECTIVE [None]
  - NASAL DRYNESS [None]
  - DRUG DISPENSING ERROR [None]
  - NASAL DISCOMFORT [None]
  - FOOD INTOLERANCE [None]
  - NEPHROLITHIASIS [None]
  - SPEECH DISORDER [None]
  - DRY THROAT [None]
  - KIDNEY INFECTION [None]
  - DYSPNOEA [None]
  - THROAT IRRITATION [None]
